FAERS Safety Report 9387864 (Version 2)
Quarter: 2013Q3

REPORT INFORMATION
  Report Type: Spontaneous
  Country: US (occurrence: US)
  Receive Date: 20130708
  Receipt Date: 20130718
  Transmission Date: 20140515
  Serious: Yes (Hospitalization)
  Sender: FDA-Public Use
  Company Number: US-INCYTE CORPORATION-2013IN001428

PATIENT
  Sex: Female
  Weight: 79.37 kg

DRUGS (8)
  1. JAKAFI [Suspect]
     Indication: MYELOFIBROSIS
     Dosage: 10 MG, BID
     Route: 048
  2. ATENOLOL [Concomitant]
  3. CLONIDINE [Concomitant]
  4. HYDROCODONE [Concomitant]
  5. HYDROXYUREA [Concomitant]
  6. LAMICTAL [Concomitant]
  7. LEVOTHYROXINE [Concomitant]
  8. MECLIZINE [Concomitant]

REACTIONS (5)
  - Lung infection [Not Recovered/Not Resolved]
  - Pulmonary congestion [None]
  - Vessel puncture site haematoma [Not Recovered/Not Resolved]
  - White blood cell count decreased [Unknown]
  - Anaemia [Not Recovered/Not Resolved]
